FAERS Safety Report 24375306 (Version 3)
Quarter: 2024Q4

REPORT INFORMATION
  Report Type: Spontaneous
  Country: JP (occurrence: JP)
  Receive Date: 20240928
  Receipt Date: 20241023
  Transmission Date: 20250115
  Serious: Yes (Life-Threatening, Other)
  Sender: ROCHE
  Company Number: JP-CHUGAI-2024033108

PATIENT
  Age: 69 Year
  Sex: Male
  Weight: 75 kg

DRUGS (15)
  1. TECENTRIQ [Suspect]
     Active Substance: ATEZOLIZUMAB
     Indication: Hepatocellular carcinoma
     Dosage: 1200 MILLIGRAM, ONCE/3WEEKS
     Route: 042
     Dates: start: 20240910, end: 20240910
  2. AVASTIN [Suspect]
     Active Substance: BEVACIZUMAB
     Indication: Hepatocellular carcinoma
     Dosage: 15 MILLIGRAM/KILOGRAM, ONCE/3WEEKS
     Route: 042
     Dates: start: 20240910, end: 20240910
  3. RYBELSUS [Concomitant]
     Active Substance: SEMAGLUTIDE
     Route: 048
     Dates: start: 20230424, end: 20240915
  4. SPIRONOLACTONE [Concomitant]
     Active Substance: SPIRONOLACTONE
     Route: 048
     Dates: end: 20240916
  5. JARDIANCE [Concomitant]
     Active Substance: EMPAGLIFLOZIN
     Route: 048
     Dates: start: 20230131, end: 20240916
  6. AMLODIPINE [Concomitant]
     Active Substance: AMLODIPINE BESYLATE
     Route: 048
     Dates: end: 20240916
  7. ALFACALCIDOL [Concomitant]
     Active Substance: ALFACALCIDOL
     Route: 048
     Dates: start: 20240404
  8. FERRIC CITRATE ANHYDROUS [Concomitant]
     Active Substance: FERRIC CITRATE ANHYDROUS
     Route: 048
     Dates: start: 20240404, end: 20240919
  9. ESOMEPRAZOLE [Concomitant]
     Active Substance: ESOMEPRAZOLE
     Route: 048
     Dates: start: 20240815
  10. CALCIUM CARBONATE [Concomitant]
     Active Substance: CALCIUM CARBONATE
     Route: 048
     Dates: start: 20240511
  11. DAPRODUSTAT [Concomitant]
     Active Substance: DAPRODUSTAT
     Route: 048
     Dates: start: 20240404
  12. SODIUM BICARBONATE [Concomitant]
     Active Substance: SODIUM BICARBONATE
     Route: 048
     Dates: start: 20240511
  13. ENTRESTO [Concomitant]
     Active Substance: SACUBITRIL\VALSARTAN
     Route: 048
     Dates: start: 20231116
  14. DAYVIGO [Concomitant]
     Active Substance: LEMBOREXANT
     Route: 048
     Dates: start: 20231118
  15. TRAZODONE HYDROCHLORIDE [Concomitant]
     Active Substance: TRAZODONE HYDROCHLORIDE
     Route: 048
     Dates: start: 20240905

REACTIONS (3)
  - Cytokine release syndrome [Recovering/Resolving]
  - Blood glucose increased [Recovering/Resolving]
  - Disseminated intravascular coagulation [Unknown]

NARRATIVE: CASE EVENT DATE: 20240914
